FAERS Safety Report 9440831 (Version 1)
Quarter: 2013Q3

REPORT INFORMATION
  Report Type: Spontaneous
  Country: US (occurrence: None)
  Receive Date: 20130801
  Receipt Date: 20130801
  Transmission Date: 20140515
  Serious: No
  Sender: FDA-Public Use
  Company Number: 2013P1013240

PATIENT
  Age: 67 Year
  Sex: Female

DRUGS (4)
  1. INFUMORPH [Suspect]
     Indication: PAIN
  2. INFUMORPH [Suspect]
     Indication: POST LAMINECTOMY SYNDROME
  3. BUPIVACAINE [Suspect]
     Indication: PAIN
  4. BUPIVACAINE [Suspect]
     Indication: POST LAMINECTOMY SYNDROME

REACTIONS (4)
  - Fall [None]
  - Device failure [None]
  - Device alarm issue [None]
  - Fracture [None]
